FAERS Safety Report 14444566 (Version 1)
Quarter: 2018Q1

REPORT INFORMATION
  Report Type: Spontaneous
  Country: JP (occurrence: JP)
  Receive Date: 20180126
  Receipt Date: 20180126
  Transmission Date: 20180509
  Serious: Yes (Other)
  Sender: FDA-Public Use
  Company Number: JP-GLAXOSMITHKLINE-JP2018JPN010942

PATIENT
  Age: 73 Year
  Sex: Male

DRUGS (1)
  1. RELVAR ELLIPTA [Suspect]
     Active Substance: FLUTICASONE FUROATE\VILANTEROL TRIFENATATE
     Dosage: 200 ?G, UNK
     Route: 055
     Dates: end: 201801

REACTIONS (4)
  - Gingival pain [Unknown]
  - Diabetes mellitus [Unknown]
  - Cerebral infarction [Unknown]
  - Thrombosis [Unknown]
